FAERS Safety Report 21171676 (Version 18)
Quarter: 2025Q4

REPORT INFORMATION
  Report Type: Report from Study
  Country: IN (occurrence: IN)
  Receive Date: 20220804
  Receipt Date: 20251208
  Transmission Date: 20260118
  Serious: Yes (Hospitalization, Other)
  Sender: NOVARTIS
  Company Number: IN-NOVARTISPH-NVSC2022IN172190

PATIENT
  Age: 67 Year
  Sex: Female

DRUGS (13)
  1. RIBOCICLIB [Suspect]
     Active Substance: RIBOCICLIB
     Indication: Breast cancer metastatic
     Dosage: 600 MG, QD
     Route: 048
     Dates: start: 20210819
  2. RIBOCICLIB [Suspect]
     Active Substance: RIBOCICLIB
     Indication: Breast cancer
     Dosage: 600 MG, TID
     Route: 048
  3. RIBOCICLIB [Suspect]
     Active Substance: RIBOCICLIB
     Indication: Metastases to breast
     Dosage: 200 MG, TID (1-1-1, TOTAL 600MG, 21/28 DAYS)
     Route: 048
  4. RIBOCICLIB [Suspect]
     Active Substance: RIBOCICLIB
     Indication: Hormone receptor positive HER2 negative breast cancer
     Dosage: 200 MG, TID
     Route: 048
  5. RIBOCICLIB [Suspect]
     Active Substance: RIBOCICLIB
     Dosage: 200 MG, OTHER (1-1-1)
     Route: 048
  6. ACETAMINOPHEN [Concomitant]
     Active Substance: ACETAMINOPHEN
     Indication: Product used for unknown indication
     Dosage: UNK
     Route: 065
  7. Alzic [Concomitant]
     Indication: Product used for unknown indication
     Dosage: 4 MG
     Route: 065
  8. Delta [Concomitant]
     Indication: Product used for unknown indication
     Dosage: UNK
     Route: 065
  9. GABAPENTIN [Concomitant]
     Active Substance: GABAPENTIN
     Indication: Product used for unknown indication
     Dosage: UNK
     Route: 065
  10. Moxovas [Concomitant]
     Indication: Blood pressure abnormal
     Dosage: 0.25 MG, QD (TABLET)
     Route: 065
  11. Triolmesar [Concomitant]
     Indication: Blood pressure abnormal
     Dosage: 200 MG, QD (TABLET)
     Route: 065
  12. Endoxan-n [Concomitant]
     Indication: Product used for unknown indication
     Dosage: UNK
     Route: 065
  13. CYCLOPHOSPHAMIDE [Concomitant]
     Active Substance: CYCLOPHOSPHAMIDE
     Indication: Product used for unknown indication
     Dosage: UNK
     Route: 065

REACTIONS (31)
  - Viral infection [Recovered/Resolved]
  - Pyrexia [Recovered/Resolved]
  - Wheezing [Recovered/Resolved]
  - Cough [Recovered/Resolved]
  - Diabetes mellitus [Unknown]
  - Neuropathy peripheral [Unknown]
  - Blood cholesterol increased [Recovered/Resolved]
  - Pyrexia [Recovered/Resolved]
  - Diarrhoea [Recovered/Resolved]
  - Pain [Recovered/Resolved]
  - Arthralgia [Recovered/Resolved]
  - Headache [Recovered/Resolved]
  - Osteoporosis [Recovered/Resolved]
  - Herpes zoster [Recovered/Resolved]
  - Hyperuricaemia [Unknown]
  - Paraesthesia [Unknown]
  - Hypoaesthesia [Unknown]
  - Arthralgia [Unknown]
  - Osteoporosis [Unknown]
  - Spinal osteoarthritis [Unknown]
  - Hypercholesterolaemia [Unknown]
  - Hypervitaminosis D [Unknown]
  - Periarthritis [Recovering/Resolving]
  - Temporomandibular pain and dysfunction syndrome [Unknown]
  - Arthritis [Recovering/Resolving]
  - Herpes zoster [Unknown]
  - Dry eye [Unknown]
  - Hypertension [Unknown]
  - Pain [Unknown]
  - Osteoarthritis [Unknown]
  - Off label use [Recovered/Resolved]

NARRATIVE: CASE EVENT DATE: 20211013
